FAERS Safety Report 5942811-7 (Version None)
Quarter: 2008Q4

REPORT INFORMATION
  Report Type: 
  Country: None (occurrence: None)
  Receive Date: 20081103
  Receipt Date: 20081027
  Transmission Date: 20090506
  Serious: Yes (Life-Threatening, Hospitalization)
  Sender: FDA-Public Use
  Company Number: WAES 0806USA08291

PATIENT
  Age: 82 Year
  Sex: Male
  Weight: 107.5025 kg

DRUGS (20)
  1. CAP VORINOSTAT UNK [Suspect]
     Indication: ACUTE MYELOID LEUKAEMIA
     Dosage: 400 MG, DAILY, PO
     Route: 048
     Dates: start: 20080504, end: 20080517
  2. CAP VORINOSTAT UNK [Suspect]
     Indication: ACUTE MYELOID LEUKAEMIA
     Dosage: 400 MG, DAILY, PO
     Route: 048
     Dates: start: 20080614, end: 20080706
  3. DECITABINE [Suspect]
     Indication: ACUTE MYELOID LEUKAEMIA
     Dosage: 44 MG, IV
     Route: 042
     Dates: start: 20080429, end: 20080503
  4. DECITABINE [Suspect]
     Indication: ACUTE MYELOID LEUKAEMIA
     Dosage: 44 MG, IV
     Route: 042
     Dates: start: 20080609, end: 20080613
  5. DECITABINE 44 MG [Suspect]
     Indication: ACUTE MYELOID LEUKAEMIA
     Dosage: 44 MG, IV
     Route: 036
     Dates: start: 20080609, end: 20080613
  6. COUMADIN [Concomitant]
  7. LOVENOX [Concomitant]
  8. NORVASC [Concomitant]
  9. PROTONIX [Concomitant]
  10. VICODIN [Concomitant]
  11. ACYCLOVIR [Concomitant]
  12. ITRACONAZOLE [Concomitant]
  13. LEVOFLOXACIN [Concomitant]
  14. METRONIDAZOLE [Concomitant]
  15. NYSTATIN [Concomitant]
  16. POTASSIUM CHLORIDE + SODIUM CH [Concomitant]
  17. ROPINIROLE [Concomitant]
  18. SODIUM BICARBONATE + SODIUM CH [Concomitant]
  19. SODIUM CHLORIDE 0.9% [Concomitant]
  20. VITAMINS (UNSPECIFIED) [Concomitant]

REACTIONS (8)
  - BRONCHOPULMONARY ASPERGILLOSIS [None]
  - CLOSTRIDIAL INFECTION [None]
  - ESCHERICHIA BACTERAEMIA [None]
  - FEBRILE NEUTROPENIA [None]
  - LOOSE TOOTH [None]
  - OROPHARYNGEAL PAIN [None]
  - RETCHING [None]
  - THROMBOCYTOPENIA [None]
